FAERS Safety Report 6905933-X (Version None)
Quarter: 2010Q3

REPORT INFORMATION
  Report Type: 
  Country: None (occurrence: None)
  Receive Date: 20100804
  Receipt Date: 20100729
  Transmission Date: 20110219
  Serious: Yes (Death)
  Sender: FDA-Public Use
  Company Number: DE-ROCHE-718493

PATIENT
  Age: 65 Year
  Sex: Female

DRUGS (2)
  1. CAPECITABINE [Suspect]
     Dosage: FOR 14 DAYS EVERY 21 DAYS; FREQUENCY: PER PROTOCOL
     Route: 065
     Dates: start: 20060406, end: 20080110
  2. CAPECITABINE [Suspect]
     Route: 065
     Dates: start: 20080118

REACTIONS (1)
  - DEATH [None]
